FAERS Safety Report 8096776-5 (Version None)
Quarter: 2012Q1

REPORT INFORMATION
  Report Type: 
  Country: None (occurrence: None)
  Receive Date: 20120129
  Receipt Date: 20111229
  Transmission Date: 20120608
  Serious: Yes (Other)
  Sender: FDA-Public Use
  Company Number: US-ABBOTT-11P-163-0862901-00

PATIENT
  Sex: Male
  Weight: 68.1 kg

DRUGS (4)
  1. HUMIRA [Suspect]
     Dates: start: 20090501, end: 20091101
  2. HUMIRA [Suspect]
     Dates: start: 20091201, end: 20100101
  3. PHOTOTHERAPY [Concomitant]
     Indication: PSORIASIS
  4. HUMIRA [Suspect]
     Indication: PSORIASIS
     Dates: start: 20090101, end: 20090201

REACTIONS (1)
  - NON-HODGKIN'S LYMPHOMA [None]
